FAERS Safety Report 20228218 (Version 1)
Quarter: 2021Q4

REPORT INFORMATION
  Report Type: Report from Study
  Country: TH (occurrence: None)
  Receive Date: 20211224
  Receipt Date: 20211224
  Transmission Date: 20220303
  Serious: Yes (Other)
  Sender: FDA-Public Use
  Company Number: 2021A892170

PATIENT
  Age: 32831 Day
  Sex: Female

DRUGS (2)
  1. IRESSA [Suspect]
     Active Substance: GEFITINIB
     Indication: Non-small cell lung cancer
     Route: 048
     Dates: start: 20180427
  2. IRESSA [Suspect]
     Active Substance: GEFITINIB
     Indication: Glomerular filtration rate
     Route: 048
     Dates: start: 20180427

REACTIONS (5)
  - Pleural effusion [Unknown]
  - Hepatic cyst [Unknown]
  - Glomerular filtration rate decreased [Unknown]
  - Renal cyst [Unknown]
  - Spinal compression fracture [Unknown]

NARRATIVE: CASE EVENT DATE: 20211120
